FAERS Safety Report 13526242 (Version 1)
Quarter: 2020Q3

REPORT INFORMATION
  Report Type: Report from Study
  Country: US (occurrence: US)
  Receive Date: 20170509
  Receipt Date: 20170509
  Transmission Date: 20201104
  Serious: Yes (Death)
  Sender: FDA-Public Use
  Company Number: US-ROCHE-1931919

PATIENT

DRUGS (10)
  1. VINCRISTINE [Suspect]
     Active Substance: VINCRISTINE
     Indication: NEOPLASM MALIGNANT
     Route: 065
  2. CETUXIMAB. [Suspect]
     Active Substance: CETUXIMAB
     Indication: NEOPLASM MALIGNANT
     Route: 065
  3. BEVACIZUMAB. [Suspect]
     Active Substance: BEVACIZUMAB
     Indication: NEOPLASM MALIGNANT
     Route: 065
  4. RITUXIMAB. [Suspect]
     Active Substance: RITUXIMAB
     Indication: NEOPLASM MALIGNANT
     Route: 065
  5. DOXORUBICIN [Suspect]
     Active Substance: DOXORUBICIN
     Indication: NEOPLASM MALIGNANT
     Route: 065
  6. GEMTUZUMAB OZOGAMICIN [Suspect]
     Active Substance: GEMTUZUMAB OZOGAMICIN
     Indication: NEOPLASM MALIGNANT
     Route: 065
  7. DASATINIB. [Suspect]
     Active Substance: DASATINIB
     Indication: NEOPLASM MALIGNANT
     Route: 065
  8. DEXAMETHASONE. [Suspect]
     Active Substance: DEXAMETHASONE
     Indication: NEOPLASM MALIGNANT
     Route: 065
  9. CEDIRANIB. [Suspect]
     Active Substance: CEDIRANIB
     Indication: NEOPLASM MALIGNANT
     Route: 065
  10. TACROLIMUS. [Suspect]
     Active Substance: TACROLIMUS
     Indication: NEOPLASM MALIGNANT
     Route: 065

REACTIONS (1)
  - Posterior reversible encephalopathy syndrome [Fatal]
